FAERS Safety Report 9149150 (Version 1)
Quarter: 2013Q1

REPORT INFORMATION
  Report Type: Spontaneous
  Country: DE (occurrence: DE)
  Receive Date: 20130308
  Receipt Date: 20130308
  Transmission Date: 20140127
  Serious: Yes (Other)
  Sender: FDA-Public Use
  Company Number: DE-PFIZER INC-2013074473

PATIENT
  Age: 48 Year
  Sex: 0

DRUGS (1)
  1. XALATAN [Suspect]
     Dosage: UNK
     Dates: start: 2012

REACTIONS (3)
  - Hypertension [Unknown]
  - Restlessness [Unknown]
  - Sensory disturbance [Unknown]
